FAERS Safety Report 6256456-5 (Version None)
Quarter: 2009Q3

REPORT INFORMATION
  Report Type: 
  Country: None (occurrence: None)
  Receive Date: 20090706
  Receipt Date: 20090628
  Transmission Date: 20100115
  Serious: Yes (Death, Other)
  Sender: FDA-Public Use
  Company Number: NL-BAYER-200924445GPV

PATIENT
  Age: 68 Year

DRUGS (1)
  1. FACTOR VIII, RECOMBINANT [Suspect]
     Indication: FACTOR VIII DEFICIENCY

REACTIONS (2)
  - FACTOR VIII INHIBITION [None]
  - HAEMORRHAGIC DISORDER [None]
